FAERS Safety Report 9316373 (Version 1)
Quarter: 2013Q2

REPORT INFORMATION
  Report Type: Spontaneous
  Country: US (occurrence: None)
  Receive Date: 20130528
  Receipt Date: 20130528
  Transmission Date: 20140414
  Serious: Yes (Disabling, Other)
  Sender: FDA-Public Use
  Company Number: None

PATIENT
  Age: 65 Year
  Sex: Male
  Weight: 95.26 kg

DRUGS (1)
  1. CIPROFLOXACIN [Suspect]
     Indication: BIOPSY PROSTATE
     Dates: start: 20120328, end: 20120329

REACTIONS (5)
  - Ankylosing spondylitis [None]
  - Condition aggravated [None]
  - Dysstasia [None]
  - Gait disturbance [None]
  - Synovial cyst [None]
